FAERS Safety Report 18066769 (Version 6)
Quarter: 2024Q4

REPORT INFORMATION
  Report Type: Spontaneous
  Country: US (occurrence: US)
  Receive Date: 20200724
  Receipt Date: 20241015
  Transmission Date: 20250114
  Serious: No
  Sender: PFIZER
  Company Number: US-PFIZER INC-2020281367

PATIENT
  Age: 64 Year
  Sex: Female

DRUGS (2)
  1. MEKTOVI [Suspect]
     Active Substance: BINIMETINIB
     Indication: Metastatic malignant melanoma
     Dosage: 3 TABS TWICE DAILY
     Route: 048
     Dates: start: 20200722
  2. BRAFTOVI [Suspect]
     Active Substance: ENCORAFENIB
     Indication: Metastatic malignant melanoma
     Dosage: 450 MG, 1X/DAY
     Dates: start: 20200722

REACTIONS (8)
  - Rash [Recovered/Resolved]
  - Fatigue [Recovering/Resolving]
  - Groin pain [Unknown]
  - Pain in extremity [Recovered/Resolved]
  - Pruritus [Unknown]
  - Paraesthesia [Unknown]
  - Back pain [Unknown]
  - Product prescribing error [Unknown]
